FAERS Safety Report 22302485 (Version 1)
Quarter: 2023Q2

REPORT INFORMATION
  Report Type: Spontaneous
  Country: US (occurrence: US)
  Receive Date: 20230510
  Receipt Date: 20230510
  Transmission Date: 20230722
  Serious: No
  Sender: FDA-Public Use
  Company Number: US-BIOGEN-2023BI01203861

PATIENT
  Age: 41 Year
  Sex: Female

DRUGS (1)
  1. VUMERITY [Suspect]
     Active Substance: DIROXIMEL FUMARATE
     Indication: Multiple sclerosis
     Route: 050
     Dates: start: 20230426, end: 20230503

REACTIONS (6)
  - Pruritus [Not Recovered/Not Resolved]
  - Diarrhoea [Not Recovered/Not Resolved]
  - Feeling hot [Recovered/Resolved]
  - Erythema [Recovered/Resolved]
  - Flushing [Unknown]
  - Rash macular [Unknown]

NARRATIVE: CASE EVENT DATE: 20230503
